FAERS Safety Report 10570524 (Version 3)
Quarter: 2017Q1

REPORT INFORMATION
  Report Type: Spontaneous
  Country: US (occurrence: US)
  Receive Date: 20141107
  Receipt Date: 20170106
  Transmission Date: 20170428
  Serious: Yes (Disabling, Other)
  Sender: FDA-Public Use
  Company Number: US-009507513-1411USA000623

PATIENT
  Sex: Female

DRUGS (4)
  1. FOSAMAX [Suspect]
     Active Substance: ALENDRONATE SODIUM
     Indication: BONE LOSS
     Dosage: 70 MG, UNKNOWN
     Route: 048
     Dates: start: 1998, end: 2010
  2. ALENDRONATE SODIUM. [Suspect]
     Active Substance: ALENDRONATE SODIUM
     Indication: BONE LOSS
     Dosage: 10 MG, UNKNOWN
     Route: 048
     Dates: start: 19990325, end: 200105
  3. ALENDRONATE SODIUM / CHOLCALCIFEROL TABLETS [Suspect]
     Active Substance: ALENDRONATE SODIUM\CHOLECALCIFEROL
     Indication: BONE LOSS
     Dosage: 70MG/2800 UNITS
     Route: 048
     Dates: start: 20071107, end: 200811
  4. ALENDRONATE SODIUM. [Suspect]
     Active Substance: ALENDRONATE SODIUM
     Dosage: 70 MG, UNKNOWN
     Route: 048
     Dates: start: 20011207, end: 200610

REACTIONS (3)
  - Femur fracture [Unknown]
  - Complication associated with device [Unknown]
  - Impaired healing [Unknown]

NARRATIVE: CASE EVENT DATE: 20090127
